FAERS Safety Report 7931748-X (Version None)
Quarter: 2011Q4

REPORT INFORMATION
  Report Type: 
  Country: None (occurrence: None)
  Receive Date: 20111121
  Receipt Date: 20111117
  Transmission Date: 20120403
  Serious: Yes (Death, Hospitalization, Other)
  Sender: FDA-Public Use
  Company Number: PHEH2010US03863

PATIENT
  Sex: Male

DRUGS (21)
  1. ASPIRIN [Concomitant]
  2. AMBIEN [Concomitant]
  3. LISINOPRIL [Concomitant]
  4. ZOFRAN [Concomitant]
  5. LOPRESSOR [Concomitant]
  6. MAGNESIUM [Concomitant]
  7. SENOKOT [Concomitant]
  8. MULTI-VITAMIN [Concomitant]
  9. ZOSYN [Concomitant]
  10. BACLOFEN [Concomitant]
  11. POTASSIUM CHLORIDE [Concomitant]
  12. TOPROL-XL [Concomitant]
  13. HYDROCHLOROTHIAZIDE [Concomitant]
  14. NALTREXONE HYDROCHLORIDE [Concomitant]
  15. PROTONIX [Concomitant]
  16. LIPITOR [Concomitant]
  17. LASIX [Concomitant]
  18. LUPRON [Concomitant]
  19. ACETAMINOPHEN [Concomitant]
  20. ZOMETA [Suspect]
     Indication: MULTIPLE MYELOMA
     Dosage: UNK
     Route: 042
     Dates: end: 20090401
  21. ASPIRIN [Concomitant]

REACTIONS (72)
  - PRIMARY SEQUESTRUM [None]
  - PROSTATE CANCER [None]
  - PULMONARY EMBOLISM [None]
  - HYPERCALCAEMIA [None]
  - COLONIC POLYP [None]
  - CORONARY ARTERY DISEASE [None]
  - DEEP VEIN THROMBOSIS [None]
  - OEDEMA PERIPHERAL [None]
  - ERECTILE DYSFUNCTION [None]
  - NASAL SEPTUM DEVIATION [None]
  - MYOCARDIAL INFARCTION [None]
  - HYPOAESTHESIA [None]
  - ATRIAL FIBRILLATION [None]
  - METASTASES TO LUNG [None]
  - RESPIRATORY FAILURE [None]
  - ISCHAEMIA [None]
  - PAIN IN EXTREMITY [None]
  - TYPE 2 DIABETES MELLITUS [None]
  - SPLENIC CALCIFICATION [None]
  - RADICULOPATHY [None]
  - EXCORIATION [None]
  - CHEST PAIN [None]
  - ATELECTASIS [None]
  - PLEURAL EFFUSION [None]
  - DYSPNOEA [None]
  - CARDIOMEGALY [None]
  - ARTERIOSCLEROSIS [None]
  - COLON CANCER [None]
  - DIVERTICULITIS [None]
  - HYPERTENSION [None]
  - SCIATICA [None]
  - BUNDLE BRANCH BLOCK RIGHT [None]
  - PROTHROMBIN TIME PROLONGED [None]
  - OSTEOARTHRITIS [None]
  - FALL [None]
  - DENTAL CARIES [None]
  - EXOSTOSIS [None]
  - RENAL CYST [None]
  - LUNG NEOPLASM [None]
  - ANAEMIA [None]
  - OBESITY [None]
  - CHRONIC OBSTRUCTIVE PULMONARY DISEASE [None]
  - HAEMORRHOIDS [None]
  - OSTEONECROSIS OF JAW [None]
  - TOOTH FRACTURE [None]
  - ABSCESS ORAL [None]
  - INTERVERTEBRAL DISC DEGENERATION [None]
  - BONE NEOPLASM MALIGNANT [None]
  - ABDOMINAL HERNIA [None]
  - PYREXIA [None]
  - HYPERLIPIDAEMIA [None]
  - CAROTID BRUIT [None]
  - MITRAL VALVE INCOMPETENCE [None]
  - OSTEOMYELITIS [None]
  - INTRA-ABDOMINAL HAEMATOMA [None]
  - INJURY [None]
  - PAIN [None]
  - SPINAL COMPRESSION FRACTURE [None]
  - TRICUSPID VALVE INCOMPETENCE [None]
  - GASTROINTESTINAL HAEMORRHAGE [None]
  - CERUMEN IMPACTION [None]
  - DEATH [None]
  - BONE DISORDER [None]
  - GINGIVITIS [None]
  - PNEUMONIA [None]
  - BACK PAIN [None]
  - ANGINA UNSTABLE [None]
  - MITRAL VALVE PROLAPSE [None]
  - SINUSITIS [None]
  - TACHYCARDIA [None]
  - NAUSEA [None]
  - METASTASES TO ABDOMINAL WALL [None]
